FAERS Safety Report 6880358-4 (Version None)
Quarter: 2010Q3

REPORT INFORMATION
  Report Type: 
  Country: None (occurrence: None)
  Receive Date: 20100728
  Receipt Date: 20100719
  Transmission Date: 20110219
  Serious: Yes (Hospitalization)
  Sender: FDA-Public Use
  Company Number: US-WATSON-2010-09543

PATIENT
  Age: 78 Year
  Sex: Female

DRUGS (2)
  1. GUANFACINE (WATSON LABORATORIES) [Suspect]
     Indication: HYPERTENSION
     Dosage: 2 MG, DAILY
     Route: 048
     Dates: start: 20000101, end: 20100208
  2. ANTIBIOTICS [Suspect]
     Indication: PNEUMONIA
     Dosage: UNK
     Route: 065
     Dates: start: 20100101

REACTIONS (3)
  - CORONARY ARTERY DISEASE [None]
  - PNEUMONIA [None]
  - VENTRICULAR TACHYCARDIA [None]
